FAERS Safety Report 8818372 (Version 2)
Quarter: 2012Q4

REPORT INFORMATION
  Report Type: Report from Study
  Country: BR (occurrence: BR)
  Receive Date: 20121001
  Receipt Date: 20121029
  Transmission Date: 20130627
  Serious: Yes (Hospitalization)
  Sender: FDA-Public Use
  Company Number: BR-ROCHE-1136482

PATIENT
  Sex: Female
  Weight: 86 kg

DRUGS (2)
  1. TOCILIZUMAB [Suspect]
     Indication: RHEUMATOID ARTHRITIS
     Route: 065
     Dates: start: 20120401, end: 20120701
  2. METHOTREXATE [Concomitant]

REACTIONS (1)
  - Osteonecrosis [Recovered/Resolved]
